FAERS Safety Report 5054285-1 (Version None)
Quarter: 2006Q3

REPORT INFORMATION
  Report Type: 
  Country: None (occurrence: None)
  Receive Date: 20060713
  Receipt Date: 20060704
  Transmission Date: 20061208
  Serious: Yes (Life-Threatening, Hospitalization, Other)
  Sender: FDA-Public Use
  Company Number: 2006-07-0121

PATIENT
  Age: 53 Year
  Sex: Female

DRUGS (9)
  1. RINDERON INJECTABLE SOLUTION  ^LIKE CELESTONE SOLUSPAN^ [Suspect]
     Indication: PREMEDICATION
     Dosage: 20 MG INTRAVENOUS
     Route: 042
     Dates: start: 20001114, end: 20050119
  2. NEDAPLATIN NO DOSE FORM [Suspect]
     Dosage: 240 MG INTRAVENOUS
     Route: 042
     Dates: start: 20031101, end: 20040913
  3. IRINOTECAN NO DOSE FORM [Suspect]
     Dosage: 130 MG INTRAVENOUS
     Route: 042
     Dates: start: 20040806, end: 20040929
  4. ZANTAC [Concomitant]
  5. DIPHENHYDRAMINE HYDROCHLORIDE [Concomitant]
  6. PACLITAXEL [Concomitant]
  7. CARBOPLATIN [Concomitant]
  8. RAMOSETRON HCL [Concomitant]
  9. .. [Concomitant]

REACTIONS (8)
  - DYSPNOEA [None]
  - HYPERSENSITIVITY [None]
  - HYPOAESTHESIA [None]
  - HYPOXIA [None]
  - NAUSEA [None]
  - NEOPLASM RECURRENCE [None]
  - OVARIAN CANCER [None]
  - VOMITING [None]
